FAERS Safety Report 13757615 (Version 2)
Quarter: 2018Q1

REPORT INFORMATION
  Report Type: Report from Study
  Country: IT (occurrence: IT)
  Receive Date: 20170717
  Receipt Date: 20180202
  Transmission Date: 20180508
  Serious: Yes (Other)
  Sender: FDA-Public Use
  Company Number: IT-CIPLA LTD.-2017IT12172

PATIENT

DRUGS (4)
  1. DEXAMETHASONE. [Concomitant]
     Active Substance: DEXAMETHASONE
     Indication: PREMEDICATION
     Dosage: 8 MG, 15 MIN BEFORE THE CHEMOTHERAPY OF DAYS 1 AND 8
     Route: 042
  2. CARBOPLATIN. [Suspect]
     Active Substance: CARBOPLATIN
     Indication: NON-SMALL CELL LUNG CANCER
     Dosage: AUC OF 5 ON DAY 1 OF EVERY 21 DAYS OVER ONE HOUR
     Route: 042
  3. RANITIDINE. [Concomitant]
     Active Substance: RANITIDINE
     Indication: PREMEDICATION
     Dosage: 100 MG, 15 MIN BEFORE THE CHEMOTHERAPY OF DAYS 1 AND 8
     Route: 042
  4. ONDANSETRON [Concomitant]
     Active Substance: ONDANSETRON
     Indication: PREMEDICATION
     Dosage: 8 MG, 15 MIN BEFORE THE CHEMOTHERAPY OF DAYS 1 AND 8
     Route: 042

REACTIONS (1)
  - Malignant neoplasm progression [Unknown]
